FAERS Safety Report 5742537-9 (Version None)
Quarter: 2008Q2

REPORT INFORMATION
  Report Type: 
  Country: None (occurrence: None)
  Receive Date: 20080515
  Receipt Date: 20080509
  Transmission Date: 20081010
  Serious: Yes (Hospitalization, Disabling)
  Sender: FDA-Public Use
  Company Number: 2008-174307-NL

PATIENT
  Age: 44 Year
  Sex: Female

DRUGS (3)
  1. MIRTAZAPINE [Suspect]
     Indication: DEPRESSION
     Dosage: 45 MG QD ORAL
     Route: 048
     Dates: start: 20080123, end: 20080212
  2. RISPERIDONE [Suspect]
     Indication: BIPOLAR DISORDER
     Dosage: 62.5 MG WEEKLY
     Dates: start: 20071102, end: 20080124
  3. RISPERIDONE [Suspect]
     Indication: SCHIZOAFFECTIVE DISORDER
     Dosage: 62.5 MG WEEKLY
     Dates: start: 20071102, end: 20080124

REACTIONS (1)
  - NEUROLEPTIC MALIGNANT SYNDROME [None]
